FAERS Safety Report 13961544 (Version 1)
Quarter: 2017Q3

REPORT INFORMATION
  Report Type: Spontaneous
  Country: DE (occurrence: DE)
  Receive Date: 20170912
  Receipt Date: 20170912
  Transmission Date: 20171128
  Serious: Yes (Other)
  Sender: FDA-Public Use
  Company Number: DE-MYLANLABS-2017M1056009

PATIENT
  Sex: Male

DRUGS (1)
  1. FORMOTEROL MYLAN [Suspect]
     Active Substance: FORMOTEROL
     Indication: PRODUCT USED FOR UNKNOWN INDICATION
     Dosage: 12 FEG, ONCE DAILY

REACTIONS (3)
  - Loss of personal independence in daily activities [Unknown]
  - Fatigue [Unknown]
  - Yawning [Unknown]
